FAERS Safety Report 9344336 (Version 1)
Quarter: 2013Q2

REPORT INFORMATION
  Report Type: Spontaneous
  Country: US (occurrence: US)
  Receive Date: 20130612
  Receipt Date: 20130612
  Transmission Date: 20140414
  Serious: Yes (Hospitalization)
  Sender: FDA-Public Use
  Company Number: US-BAYER-2013-071809

PATIENT
  Age: 48 Year
  Sex: Female
  Weight: 61 kg

DRUGS (4)
  1. YAZ [Suspect]
     Indication: MENOPAUSE
  2. VALTREX [Concomitant]
     Indication: GENITAL HERPES
     Dosage: 500 MG, 30 1 DAILY REFILL [TIMES] 12
  3. PREVACID [Concomitant]
     Dosage: 30 MG, UNK
  4. IBUPROFEN [Concomitant]

REACTIONS (2)
  - Deep vein thrombosis [None]
  - Pulmonary embolism [None]
